FAERS Safety Report 21357042 (Version 3)
Quarter: 2023Q4

REPORT INFORMATION
  Report Type: Report from Study
  Country: DE (occurrence: DE)
  Receive Date: 20220921
  Receipt Date: 20231004
  Transmission Date: 20240110
  Serious: Yes (Other)
  Sender: FDA-Public Use
  Company Number: DE-SUN PHARMACEUTICAL INDUSTRIES LTD-2022RR-347525

PATIENT
  Age: 80 Year
  Sex: Male

DRUGS (11)
  1. SONIDEGIB [Suspect]
     Active Substance: SONIDEGIB
     Indication: Basal cell carcinoma
     Dosage: 200 MILLIGRAM, DAILY
     Route: 048
     Dates: start: 20220201, end: 20220324
  2. METOPROLOL [Concomitant]
     Active Substance: METOPROLOL
     Indication: Pre-existing disease
     Dosage: UNK, DAILY
     Route: 048
  3. VALSARTAN [Concomitant]
     Active Substance: VALSARTAN
     Indication: Pre-existing disease
     Dosage: UNK, DAILY
     Route: 065
  4. Lecarnidipin [Concomitant]
     Indication: Pre-existing disease
     Dosage: 20 MG UNK
     Route: 065
  5. MARCUMAR [Concomitant]
     Active Substance: PHENPROCOUMON
     Indication: Pre-existing disease
     Dosage: 3 MILLIGRAM
     Route: 048
  6. SODIUM BICARBONATE [Concomitant]
     Active Substance: SODIUM BICARBONATE
     Indication: Prophylaxis
     Dosage: UNK, TID
     Route: 048
  7. PROPIVERINE HYDROCHLORIDE [Concomitant]
     Active Substance: PROPIVERINE HYDROCHLORIDE
     Indication: Pre-existing disease
     Dosage: 30 MILLIGRAM, DAILY
     Route: 048
  8. Symbicort/Turbohaler Inhalation [Concomitant]
     Indication: Pre-existing disease
     Dosage: 1 APPLICATION
  9. EDOXABAN TOSYLATE [Concomitant]
     Active Substance: EDOXABAN TOSYLATE
     Indication: Pre-existing disease
     Dosage: 60 MILLIGRAM, DAILY
     Route: 048
     Dates: start: 20220801
  10. ASPIRIN\OXYCODONE HYDROCHLORIDE [Concomitant]
     Active Substance: ASPIRIN\OXYCODONE HYDROCHLORIDE
     Indication: Pre-existing disease
     Dosage: 10 MILLIGRAM, BID
     Route: 048
     Dates: start: 20220912
  11. Naloxan [Concomitant]
     Indication: Pre-existing disease
     Dosage: 5 MILLIGRAM, BID
     Route: 048
     Dates: start: 20220912

REACTIONS (6)
  - Blood creatine phosphokinase increased [Unknown]
  - Muscle spasms [Recovered/Resolved]
  - Myalgia [Unknown]
  - Arthralgia [Unknown]
  - Urobilinogen urine increased [Unknown]
  - Dyspnoea [Unknown]

NARRATIVE: CASE EVENT DATE: 20220325
